FAERS Safety Report 24059052 (Version 2)
Quarter: 2024Q3

REPORT INFORMATION
  Report Type: Report from Study
  Country: US (occurrence: US)
  Receive Date: 20240708
  Receipt Date: 20240813
  Transmission Date: 20241016
  Serious: Yes (Other)
  Sender: EMD SERONO INC
  Company Number: US-Merck Healthcare KGaA-2024029806

PATIENT
  Age: 53 Year
  Sex: Female

DRUGS (1)
  1. MAVENCLAD [Suspect]
     Active Substance: CLADRIBINE
     Indication: Multiple sclerosis
     Dosage: YEAR ONE MONTH ONE THERAPY: PRESCRIBED DOSE WAS 50 MG.
     Route: 048
     Dates: start: 20240520

REACTIONS (13)
  - Sinus disorder [Unknown]
  - Dyspnoea [Unknown]
  - Seizure [Unknown]
  - Headache [Unknown]
  - Dizziness [Unknown]
  - Vision blurred [Unknown]
  - Dysarthria [Unknown]
  - Dysphemia [Unknown]
  - Asthenia [Unknown]
  - Fall [Unknown]
  - Head injury [Unknown]
  - Somnolence [Unknown]
  - Diplopia [Unknown]

NARRATIVE: CASE EVENT DATE: 20240520
